FAERS Safety Report 9553908 (Version 1)
Quarter: 2013Q3

REPORT INFORMATION
  Report Type: Spontaneous
  Country: TR (occurrence: None)
  Receive Date: 20130923
  Receipt Date: 20130923
  Transmission Date: 20140515
  Serious: Yes (Other)
  Sender: FDA-Public Use
  Company Number: FK201304249

PATIENT
  Age: 56 Year
  Sex: Male

DRUGS (1)
  1. VANCOMYCIN [Suspect]
     Indication: STAPHYLOCOCCAL INFECTION
     Dosage: 10-15 MINUTES, INTRAVENOUS (NOT OTHERWISE SPECIFIED)??
     Route: 042

REACTIONS (3)
  - Red man syndrome [None]
  - Hypotension [None]
  - Inappropriate schedule of drug administration [None]
